FAERS Safety Report 6610083-6 (Version None)
Quarter: 2010Q1

REPORT INFORMATION
  Report Type: 
  Country: None (occurrence: None)
  Receive Date: 20100302
  Receipt Date: 20100216
  Transmission Date: 20100710
  Serious: Yes (Hospitalization)
  Sender: FDA-Public Use
  Company Number: NL-MEDIMMUNE-MEDI-0010594

PATIENT
  Sex: Female

DRUGS (2)
  1. SYNAGIS [Suspect]
     Route: 030
     Dates: start: 20090903, end: 20100122
  2. SYNAGIS [Suspect]
     Route: 030
     Dates: start: 20100216

REACTIONS (3)
  - DYSPNOEA [None]
  - PYREXIA [None]
  - RESPIRATORY TRACT INFECTION BACTERIAL [None]
